FAERS Safety Report 11025474 (Version 1)
Quarter: 2015Q2

REPORT INFORMATION
  Report Type: Spontaneous
  Country: US (occurrence: None)
  Receive Date: 20150413
  Receipt Date: 20150413
  Transmission Date: 20150821
  Serious: No
  Sender: FDA-Public Use
  Company Number: None

PATIENT
  Sex: Female

DRUGS (3)
  1. TORISEL [Suspect]
     Active Substance: TEMSIROLIMUS
  2. SUTENT [Suspect]
     Active Substance: SUNITINIB MALATE
  3. INLYTA [Suspect]
     Active Substance: AXITINIB

REACTIONS (5)
  - Blister [None]
  - Drug ineffective [None]
  - Pulmonary oedema [None]
  - Vomiting [None]
  - Pericardial effusion [None]
